FAERS Safety Report 13500044 (Version 1)
Quarter: 2017Q2

REPORT INFORMATION
  Report Type: Spontaneous
  Country: US (occurrence: US)
  Receive Date: 20170501
  Receipt Date: 20170501
  Transmission Date: 20170830
  Serious: Yes (Death)
  Sender: FDA-Public Use
  Company Number: None

PATIENT
  Age: 47 Year
  Sex: Female
  Weight: 82.4 kg

DRUGS (1)
  1. SORAFENIB [Suspect]
     Active Substance: SORAFENIB
     Indication: ACUTE MYELOID LEUKAEMIA
     Route: 048
     Dates: start: 20170317, end: 20170425

REACTIONS (4)
  - Hyperleukocytosis [None]
  - Respiratory failure [None]
  - Tumour lysis syndrome [None]
  - Acute kidney injury [None]

NARRATIVE: CASE EVENT DATE: 20170430
